FAERS Safety Report 4481400-0 (Version None)
Quarter: 2004Q3

REPORT INFORMATION
  Report Type: 
  Country: None (occurrence: None)
  Receive Date: 20040923
  Receipt Date: 20040623
  Transmission Date: 20050211
  Serious: No
  Sender: FDA-Public Use
  Company Number: USA031253891

PATIENT
  Age: 84 Year
  Sex: Female

DRUGS (8)
  1. FORTEO [Suspect]
     Indication: OSTEOPOROSIS
     Dosage: 20 UG DAY
     Dates: start: 20021118
  2. NEXIUM [Concomitant]
  3. NORVASC [Concomitant]
  4. ZOCOR [Concomitant]
  5. LEXAPRO [Concomitant]
  6. MULTI-VITAMINS [Concomitant]
  7. CALCIUM CARBONATE [Concomitant]
  8. DITROPAN [Concomitant]

REACTIONS (7)
  - BACK PAIN [None]
  - FEAR [None]
  - HYPOACUSIS [None]
  - INJECTION SITE DISCOLOURATION [None]
  - INJECTION SITE HAEMORRHAGE [None]
  - SUBCUTANEOUS NODULE [None]
  - VISUAL ACUITY REDUCED [None]
